FAERS Safety Report 4678720-3 (Version None)
Quarter: 2005Q2

REPORT INFORMATION
  Report Type: 
  Country: None (occurrence: None)
  Receive Date: 20050531
  Receipt Date: 20050518
  Transmission Date: 20051028
  Serious: Yes (Hospitalization, Other)
  Sender: FDA-Public Use
  Company Number: 2005006143

PATIENT
  Age: 66 Year
  Sex: Female
  Weight: 72.5755 kg

DRUGS (9)
  1. LISTERINE MOUTHWASH ADVANCED ARCTIC MINT (MENTHOL, METHYL SALICYLATE, [Suspect]
     Indication: HALITOSIS
     Dosage: 1/2 CUP, TID, ORAL TOPCIAL
     Route: 061
  2. LISTERINE ANTISEPTIC MOUTHWAST (MENTHOL, METHYL SALICYLATE, EUCALYPOTO [Suspect]
     Indication: HALITOSIS
     Dosage: AMT, ORAL TOPICAL
     Route: 061
  3. LEXXEL (ENALAPRIL MALEATE, FELODIPINE) [Concomitant]
  4. FENOFIBRATE [Concomitant]
  5. FUROSEMIDE [Concomitant]
  6. CENTRUM (MINERALS NOS, VITAMINS NOS) [Concomitant]
  7. ASCORBIC ACID [Concomitant]
  8. CARVEDILOL [Concomitant]
  9. ALPRAZOLAM [Concomitant]

REACTIONS (3)
  - BREAST CANCER FEMALE [None]
  - DIVERTICULITIS [None]
  - ULCER HAEMORRHAGE [None]
